FAERS Safety Report 8029202-2 (Version None)
Quarter: 2012Q1

REPORT INFORMATION
  Report Type: 
  Country: None (occurrence: None)
  Receive Date: 20120106
  Receipt Date: 20111228
  Transmission Date: 20120608
  Serious: Yes (Hospitalization, Other)
  Sender: FDA-Public Use
  Company Number: US-ASTRAZENECA-2011SE56180

PATIENT
  Age: 59 Year
  Sex: Female

DRUGS (6)
  1. TOPROL-XL [Suspect]
     Route: 048
  2. COLAZEL [Concomitant]
  3. FASLODEX [Suspect]
     Route: 030
  4. LEXAPRO [Concomitant]
  5. XANAX [Concomitant]
  6. ARIMIDEX [Suspect]
     Route: 048

REACTIONS (4)
  - MEDIASTINAL MASS [None]
  - RECURRENT CANCER [None]
  - BREAST CANCER METASTATIC [None]
  - NEOPLASM MALIGNANT [None]
